FAERS Safety Report 8732924 (Version 3)
Quarter: 2012Q4

REPORT INFORMATION
  Report Type: 
  Country: TR (occurrence: TR)
  Receive Date: 20120820
  Receipt Date: 20121207
  Transmission Date: 20130627
  Serious: Yes (Other)
  Sender: FDA-Public Use
  Company Number: TR-ELI_LILLY_AND_COMPANY-TR201208004121

PATIENT
  Age: 33 Year
  Sex: Female
  Weight: 78 kg

DRUGS (2)
  1. HUMALOG LISPRO [Suspect]
     Indication: GESTATIONAL DIABETES
     Dosage: 4 IU, tid
     Route: 058
     Dates: start: 201206
  2. HUMULIN NPH [Suspect]
     Indication: GESTATIONAL DIABETES
     Dosage: 6 IU, qd
     Route: 058
     Dates: start: 201206

REACTIONS (4)
  - Hypoglycaemia [Recovered/Resolved]
  - Wrong drug administered [Recovered/Resolved]
  - Caesarean section [Recovered/Resolved]
  - Exposure during pregnancy [Recovered/Resolved]
